FAERS Safety Report 6132818-1 (Version None)
Quarter: 2009Q1

REPORT INFORMATION
  Report Type: 
  Country: None (occurrence: None)
  Receive Date: 20090324
  Receipt Date: 20090316
  Transmission Date: 20090719
  Serious: Yes (Hospitalization)
  Sender: FDA-Public Use
  Company Number: ADR0892009

PATIENT
  Age: 56 Year
  Sex: Male

DRUGS (14)
  1. SIMVASTATIN [Suspect]
     Dosage: 40 MG/DAY
  2. CYCLOSPORINE [Concomitant]
  3. RANOLAZINE XR 500 MG [Concomitant]
  4. DILTIAZEM [Concomitant]
  5. CARVEDILOL [Concomitant]
  6. METOPROLOL [Concomitant]
  7. FUROSEMIDE [Concomitant]
  8. TAMSULOSIN HCL [Concomitant]
  9. SERTRALINE HCL [Concomitant]
  10. FLUDROCORTISONE [Concomitant]
  11. CLONIDINE [Concomitant]
  12. ESOMEPRAZOLE MAGNESIUM [Concomitant]
  13. CLOPIDOGREL [Concomitant]
  14. INSULIN GLARGINE [Concomitant]

REACTIONS (2)
  - DRUG INTERACTION [None]
  - RHABDOMYOLYSIS [None]
